FAERS Safety Report 10945656 (Version 2)
Quarter: 2015Q2

REPORT INFORMATION
  Report Type: Spontaneous
  Country: US (occurrence: US)
  Receive Date: 20150323
  Receipt Date: 20150512
  Transmission Date: 20150821
  Serious: No
  Sender: FDA-Public Use
  Company Number: US-009507513-1503USA009681

PATIENT
  Sex: Female

DRUGS (3)
  1. INTRON A [Suspect]
     Active Substance: INTERFERON ALFA-2B
     Indication: THROMBOCYTOSIS
     Dosage: UNK
  2. ANAGRELIDE HYDROCHLORIDE. [Suspect]
     Active Substance: ANAGRELIDE HYDROCHLORIDE
     Dosage: UNK
  3. HYDROXYUREA. [Suspect]
     Active Substance: HYDROXYUREA
     Dosage: UNK

REACTIONS (11)
  - Platelet count increased [Not Recovered/Not Resolved]
  - Diarrhoea [Not Recovered/Not Resolved]
  - Malaise [Not Recovered/Not Resolved]
  - Hypertension [Not Recovered/Not Resolved]
  - Feeding disorder [Not Recovered/Not Resolved]
  - Confusional state [Not Recovered/Not Resolved]
  - Abdominal discomfort [Not Recovered/Not Resolved]
  - Palpitations [Not Recovered/Not Resolved]
  - Drug dose omission [Unknown]
  - Medication error [Unknown]
  - Nausea [Not Recovered/Not Resolved]
